FAERS Safety Report 7020876-1 (Version None)
Quarter: 2010Q3

REPORT INFORMATION
  Report Type: 
  Country: None (occurrence: None)
  Receive Date: 20100929
  Receipt Date: 20100921
  Transmission Date: 20110219
  Serious: Yes (Other)
  Sender: FDA-Public Use
  Company Number: GB-PFIZER INC-2010068328

PATIENT
  Age: 45 Year
  Sex: Male

DRUGS (2)
  1. SUTENT [Suspect]
     Indication: METASTATIC RENAL CELL CARCINOMA
     Dosage: 50 MG, CYCLIC (4 WEEKS ON, 2 WEEKS OFF)
     Route: 048
     Dates: start: 20091009
  2. TINZAPARIN SODIUM [Concomitant]
     Indication: POST PROCEDURAL PULMONARY EMBOLISM
     Dosage: UNK
     Dates: start: 20091001

REACTIONS (1)
  - TOOTH INFECTION [None]
